FAERS Safety Report 7092857-3 (Version None)
Quarter: 2010Q4

REPORT INFORMATION
  Report Type: 
  Country: None (occurrence: None)
  Receive Date: 20101110
  Receipt Date: 20101103
  Transmission Date: 20110411
  Serious: Yes (Other)
  Sender: FDA-Public Use
  Company Number: US-PFIZER INC-2010050699

PATIENT
  Age: 77 Year
  Sex: Male

DRUGS (6)
  1. LIPITOR [Suspect]
     Indication: TRANSIENT ISCHAEMIC ATTACK
     Dosage: 80 MG, 1X/DAY
     Route: 048
     Dates: start: 20100119
  2. LIPITOR [Suspect]
     Indication: LIPIDS INCREASED
  3. LIPITOR [Suspect]
     Indication: CEREBROVASCULAR ACCIDENT
  4. WARFARIN [Concomitant]
  5. METOPROLOL TARTRATE [Concomitant]
  6. RANITIDINE [Concomitant]

REACTIONS (3)
  - ALANINE AMINOTRANSFERASE ABNORMAL [None]
  - BLOOD ALKALINE PHOSPHATASE ABNORMAL [None]
  - LIVER FUNCTION TEST ABNORMAL [None]
